FAERS Safety Report 5269684-2 (Version None)
Quarter: 2007Q1

REPORT INFORMATION
  Report Type: 
  Country: None (occurrence: None)
  Receive Date: 20061218
  Receipt Date: 20060522
  Transmission Date: 20070707
  Serious: Yes (Other)
  Sender: FDA-Public Use
  Company Number: US200605004986

PATIENT
  Age: 24 Year
  Sex: Female

DRUGS (2)
  1. HUMALOG [Suspect]
     Indication: DIABETES MELLITUS INSULIN-DEPENDENT
     Dosage: SUB. PUMP
     Dates: start: 19980101
  2. ULTRAM [Concomitant]

REACTIONS (8)
  - BLOOD GLUCOSE INCREASED [None]
  - DEHYDRATION [None]
  - DIABETIC KETOACIDOSIS [None]
  - DYSPNOEA [None]
  - GAIT DISTURBANCE [None]
  - URINE KETONE BODY PRESENT [None]
  - VISION BLURRED [None]
  - VOMITING [None]
